FAERS Safety Report 15731128 (Version 2)
Quarter: 2018Q4

REPORT INFORMATION
  Report Type: Spontaneous
  Country: GB (occurrence: GB)
  Receive Date: 20181217
  Receipt Date: 20181217
  Transmission Date: 20190205
  Serious: Yes (Death, Other)
  Sender: FDA-Public Use
  Company Number: GB-SA-2018SA340232

PATIENT
  Age: 29 Year
  Sex: Female

DRUGS (8)
  1. SUXAMETHONIUM [Suspect]
     Active Substance: SUCCINYLCHOLINE
     Route: 065
     Dates: start: 19770922, end: 19770922
  2. LIDOCAINE. [Suspect]
     Active Substance: LIDOCAINE
     Route: 065
     Dates: start: 19770922, end: 19770922
  3. ERGOMETRINE [Suspect]
     Active Substance: ERGONOVINE MALEATE
     Route: 065
     Dates: start: 19770922, end: 19770922
  4. HALOTHANE. [Suspect]
     Active Substance: HALOTHANE
     Route: 065
     Dates: start: 19770922, end: 19770922
  5. FENTANYL. [Suspect]
     Active Substance: FENTANYL
     Route: 065
     Dates: start: 19770922, end: 19770922
  6. NITROUS OXIDE. [Suspect]
     Active Substance: NITROUS OXIDE
     Route: 065
     Dates: start: 19770922, end: 19770922
  7. ATROPINE. [Suspect]
     Active Substance: ATROPINE
     Route: 065
     Dates: start: 19770922, end: 19770922
  8. THIOPENTAL [Suspect]
     Active Substance: THIOPENTAL
     Route: 065
     Dates: start: 19770922, end: 19770922

REACTIONS (1)
  - Anaphylactoid reaction [Fatal]

NARRATIVE: CASE EVENT DATE: 19770922
